FAERS Safety Report 24323085 (Version 1)
Quarter: 2024Q3

REPORT INFORMATION
  Report Type: Spontaneous
  Country: US (occurrence: None)
  Receive Date: 20240913
  Receipt Date: 20240913
  Transmission Date: 20241017
  Serious: No
  Sender: Public
  Company Number: None

PATIENT
  Age: 62 Year
  Sex: Female
  Weight: 51.9 kg

DRUGS (1)
  1. CARVYKTI [Suspect]
     Active Substance: CILTACABTAGENE AUTOLEUCEL
     Indication: Plasma cell myeloma
     Dosage: 1 DF FOSAGE FORM ONCE INTRAVENOUS
     Route: 042
     Dates: start: 20240725, end: 20240725

REACTIONS (2)
  - Cytokine release syndrome [None]
  - Hypertransaminasaemia [None]

NARRATIVE: CASE EVENT DATE: 20240802
